FAERS Safety Report 19388975 (Version 1)
Quarter: 2021Q2

REPORT INFORMATION
  Report Type: Spontaneous
  Country: US (occurrence: US)
  Receive Date: 20210607
  Receipt Date: 20210607
  Transmission Date: 20210717
  Serious: Yes (Death)
  Sender: FDA-Public Use
  Company Number: None

PATIENT
  Age: 66 Year
  Sex: Male

DRUGS (1)
  1. BOTOX [Suspect]
     Active Substance: ONABOTULINUMTOXINA
     Indication: HEMIPLEGIA
     Dosage: ?         DOSE: 400 UNK?OTHER FREQUENCY:EVERY 90 DAYS;?
     Route: 030
     Dates: start: 20190613, end: 20210426

REACTIONS (1)
  - Death [None]

NARRATIVE: CASE EVENT DATE: 20210426
